FAERS Safety Report 15004667 (Version 1)
Quarter: 2018Q2

REPORT INFORMATION
  Report Type: Spontaneous
  Country: GB (occurrence: GB)
  Receive Date: 20180613
  Receipt Date: 20180613
  Transmission Date: 20180711
  Serious: Yes (Other)
  Sender: FDA-Public Use
  Company Number: GB-TEVA-818829ACC

PATIENT
  Age: 53 Year
  Sex: Male
  Weight: 76.19 kg

DRUGS (6)
  1. RAMIPRIL. [Concomitant]
     Active Substance: RAMIPRIL
     Dosage: 2.5 MILLIGRAM DAILY;
     Dates: start: 20170801
  2. CLOPIDOGREL [Concomitant]
     Active Substance: CLOPIDOGREL BISULFATE
     Dosage: 75 MILLIGRAM DAILY;
     Dates: start: 20170801
  3. SERTRALINE [Suspect]
     Active Substance: SERTRALINE HYDROCHLORIDE
     Indication: MOOD SWINGS
     Route: 048
     Dates: start: 20170905, end: 20171006
  4. SIMVASTATIN. [Concomitant]
     Active Substance: SIMVASTATIN
     Dosage: 40 MILLIGRAM DAILY; AT NIGHT
     Dates: start: 20170801, end: 20171006
  5. ATORVASTATIN [Concomitant]
     Active Substance: ATORVASTATIN
     Dosage: 10 MILLIGRAM DAILY;
     Dates: start: 20171006
  6. ZOPICLONE [Concomitant]
     Active Substance: ZOPICLONE
     Indication: SLEEP DISORDER
     Dosage: 3.75 MILLIGRAM DAILY; AT NIGHT
     Dates: start: 20170905

REACTIONS (1)
  - Erectile dysfunction [Recovered/Resolved]
